FAERS Safety Report 4622944-8 (Version None)
Quarter: 2005Q1

REPORT INFORMATION
  Report Type: 
  Country: None (occurrence: None)
  Receive Date: 20050329
  Receipt Date: 20031125
  Transmission Date: 20050727
  Serious: Yes (Death)
  Sender: FDA-Public Use
  Company Number: 9991

PATIENT
  Age: 71 Year
  Sex: Female

DRUGS (9)
  1. METHOTREXATE [Suspect]
     Dosage: 0.571 MG
     Dates: start: 20021226, end: 20030115
  2. CALCITRIOL [Concomitant]
  3. ASCORBIC ACID/CALCIUM PANTOTHENATE [Concomitant]
  4. ASPARTATE CALCIUM [Concomitant]
  5. BUCILLAMINE [Concomitant]
  6. FERROUS SULFATE TAB [Concomitant]
  7. LOXOPROFEN SODIUM [Concomitant]
  8. MISOPROSTOL [Concomitant]
  9. URSODEOXYCHOLIC ACID [Concomitant]

REACTIONS (5)
  - BLOOD CREATININE INCREASED [None]
  - BLOOD UREA INCREASED [None]
  - CYTOMEGALOVIRUS ANTIGEN POSITIVE [None]
  - PANCYTOPENIA [None]
  - PNEUMOCYSTIS JIROVECI PNEUMONIA [None]
